FAERS Safety Report 5382041-3 (Version None)
Quarter: 2007Q3

REPORT INFORMATION
  Report Type: 
  Country: None (occurrence: None)
  Receive Date: 20070709
  Receipt Date: 20070628
  Transmission Date: 20080115
  Serious: Yes (Death, Hospitalization)
  Sender: FDA-Public Use
  Company Number: US-GENENTECH-238642

PATIENT
  Sex: Male
  Weight: 61.678 kg

DRUGS (11)
  1. BEVACIZUMAB [Suspect]
     Indication: SMALL CELL LUNG CANCER STAGE UNSPECIFIED
     Dosage: 10 MG/KG, DAYS 1+15
     Route: 042
     Dates: start: 20070207
  2. IRINOTECAN HCL [Suspect]
     Indication: SMALL CELL LUNG CANCER STAGE UNSPECIFIED
     Dosage: 60 MG/M2, DAYS1,8,15
     Route: 042
     Dates: start: 20070207
  3. CARBOPLATIN [Suspect]
     Indication: SMALL CELL LUNG CANCER STAGE UNSPECIFIED
     Dosage: 4 AUC, UNK
     Route: 042
     Dates: start: 20070207
  4. RISPERDAL [Concomitant]
     Indication: DRUG USE FOR UNKNOWN INDICATION
     Dosage: UNK, QD
  5. XALATAN [Concomitant]
     Indication: DRUG USE FOR UNKNOWN INDICATION
     Dosage: UNK, QD
  6. ISORDIL [Concomitant]
     Indication: DRUG USE FOR UNKNOWN INDICATION
     Dosage: UNK, QD
  7. PERSANTINE [Concomitant]
     Indication: DRUG USE FOR UNKNOWN INDICATION
     Dosage: UNK, QD
  8. TIXOCORTOL PIVALATE [Concomitant]
     Indication: DRUG USE FOR UNKNOWN INDICATION
  9. TIMOPTIC [Concomitant]
     Indication: DRUG USE FOR UNKNOWN INDICATION
  10. TENORMIN [Concomitant]
     Indication: DRUG USE FOR UNKNOWN INDICATION
  11. SENOKOT [Concomitant]
     Indication: DRUG USE FOR UNKNOWN INDICATION

REACTIONS (3)
  - DEATH [None]
  - NEUTROPENIA [None]
  - PYREXIA [None]
